FAERS Safety Report 9343149 (Version 1)
Quarter: 2013Q2

REPORT INFORMATION
  Report Type: Spontaneous
  Country: US (occurrence: US)
  Receive Date: 20130611
  Receipt Date: 20130611
  Transmission Date: 20140414
  Serious: Yes (Other)
  Sender: FDA-Public Use
  Company Number: US-ASTRAZENECA-2012SE17896

PATIENT
  Age: 82 Year
  Sex: Male
  Weight: 88 kg

DRUGS (2)
  1. ZOLADEX [Suspect]
     Route: 058
  2. TOPROL XL [Suspect]
     Route: 048

REACTIONS (1)
  - Osteoarthritis [Unknown]
